FAERS Safety Report 12960228 (Version 5)
Quarter: 2016Q4

REPORT INFORMATION
  Report Type: Report from Study
  Country: US (occurrence: US)
  Receive Date: 20161121
  Receipt Date: 20161219
  Transmission Date: 20170207
  Serious: Yes (Hospitalization)
  Sender: FDA-Public Use
  Company Number: US-GILEAD-2016-0242791

PATIENT
  Age: 66 Year
  Sex: Female
  Weight: 54.55 kg

DRUGS (4)
  1. REMODULIN [Concomitant]
     Active Substance: TREPROSTINIL
  2. AMBRISENTAN [Suspect]
     Active Substance: AMBRISENTAN
     Indication: SCLERODERMA
  3. AMBRISENTAN [Suspect]
     Active Substance: AMBRISENTAN
     Indication: PULMONARY ARTERIAL HYPERTENSION
     Dosage: 5 MG, QD
     Route: 048
     Dates: start: 20161020
  4. ADCIRCA [Concomitant]
     Active Substance: TADALAFIL
     Dosage: UNK

REACTIONS (7)
  - Blood creatinine increased [Recovered/Resolved]
  - Dyspnoea [Recovered/Resolved]
  - Urinary tract infection [Recovered/Resolved]
  - Oedema peripheral [Recovered/Resolved]
  - Dyspnoea [Unknown]
  - Oedema [Recovered/Resolved]
  - Device issue [Recovered/Resolved]

NARRATIVE: CASE EVENT DATE: 20161117
